FAERS Safety Report 13588671 (Version 1)
Quarter: 2017Q2

REPORT INFORMATION
  Report Type: Spontaneous
  Country: NL (occurrence: NL)
  Receive Date: 20170529
  Receipt Date: 20170529
  Transmission Date: 20170830
  Serious: Yes (Hospitalization)
  Sender: FDA-Public Use
  Company Number: NL-PFIZER INC-2017228117

PATIENT
  Age: 5 Year
  Sex: Female
  Weight: 17 kg

DRUGS (3)
  1. GENOTROPIN [Suspect]
     Active Substance: SOMATROPIN
     Indication: GROWTH RETARDATION
     Dosage: 0.7 MG, 1X/DAY
     Route: 058
     Dates: start: 20160604
  2. PARACETAMOL [Concomitant]
     Active Substance: ACETAMINOPHEN
     Dosage: 240 MG, (ZN 3 DD)
  3. FORLAX JUNIOR [Concomitant]
     Dosage: 4 G, 2X/DAY
     Route: 048

REACTIONS (2)
  - Myositis [Recovering/Resolving]
  - Fasciitis [Recovering/Resolving]

NARRATIVE: CASE EVENT DATE: 20170420
